FAERS Safety Report 5554272-0 (Version None)
Quarter: 2007Q4

REPORT INFORMATION
  Report Type: 
  Country: None (occurrence: None)
  Receive Date: 20071213
  Receipt Date: 20071212
  Transmission Date: 20080405
  Serious: Yes (Hospitalization)
  Sender: FDA-Public Use
  Company Number: B0359455A

PATIENT
  Sex: Female

DRUGS (2)
  1. SEROXAT [Suspect]
     Route: 065
     Dates: start: 19970101
  2. FLUOXETINE HYDROCHLORIDE [Concomitant]

REACTIONS (12)
  - AGGRESSION [None]
  - ANGER [None]
  - ANXIETY [None]
  - DELUSION [None]
  - DEPRESSIVE SYMPTOM [None]
  - HALLUCINATION, AUDITORY [None]
  - INTENTIONAL OVERDOSE [None]
  - PSYCHOTIC BEHAVIOUR [None]
  - SCHIZOPHRENIFORM DISORDER [None]
  - SUICIDAL IDEATION [None]
  - SUICIDE ATTEMPT [None]
  - THOUGHT BROADCASTING [None]
